FAERS Safety Report 24600584 (Version 2)
Quarter: 2024Q4

REPORT INFORMATION
  Report Type: Spontaneous
  Country: US (occurrence: US)
  Receive Date: 20241110
  Receipt Date: 20241126
  Transmission Date: 20250115
  Serious: No
  Sender: SANOFI AVENTIS
  Company Number: US-SA-2024SA322014

PATIENT
  Age: 36 Year
  Sex: Female

DRUGS (1)
  1. DUPIXENT [Suspect]
     Active Substance: DUPILUMAB
     Indication: Nasal polyps
     Dosage: 300 MG, QOW
     Route: 058
     Dates: start: 20241024

REACTIONS (4)
  - Muscle twitching [Recovered/Resolved]
  - Myalgia [Recovered/Resolved]
  - Pain in extremity [Recovered/Resolved]
  - Arthralgia [Unknown]

NARRATIVE: CASE EVENT DATE: 20241025
